APPROVED DRUG PRODUCT: BETAMETHASONE DIPROPIONATE
Active Ingredient: BETAMETHASONE DIPROPIONATE
Strength: EQ 0.05% BASE
Dosage Form/Route: OINTMENT, AUGMENTED;TOPICAL
Application: A074304 | Product #001 | TE Code: AB
Applicant: ACTAVIS MID ATLANTIC LLC
Approved: Aug 31, 1995 | RLD: No | RS: No | Type: RX